FAERS Safety Report 5911080-6 (Version None)
Quarter: 2008Q4

REPORT INFORMATION
  Report Type: 
  Country: None (occurrence: None)
  Receive Date: 20081007
  Receipt Date: 20071016
  Transmission Date: 20090506
  Serious: No
  Sender: FDA-Public Use
  Company Number: US-BRISTOL-MYERS SQUIBB COMPANY-13943642

PATIENT
  Age: 82 Year
  Sex: Male
  Weight: 91 kg

DRUGS (6)
  1. AVAPRO [Suspect]
     Indication: BLOOD PRESSURE INCREASED
     Route: 048
     Dates: start: 20060201
  2. DIGOXIN [Suspect]
  3. TOPROL-XL [Suspect]
  4. ZETIA [Suspect]
  5. CARDIZEM [Suspect]
  6. MULTI-VITAMIN [Concomitant]

REACTIONS (2)
  - AMNESIA [None]
  - CONFUSIONAL STATE [None]
